FAERS Safety Report 16480459 (Version 2)
Quarter: 2019Q3

REPORT INFORMATION
  Report Type: Spontaneous
  Country: US (occurrence: US)
  Receive Date: 20190626
  Receipt Date: 20190918
  Transmission Date: 20191004
  Serious: Yes (Other)
  Sender: FDA-Public Use
  Company Number: US-VIIV HEALTHCARE LIMITED-US2019AMR112865

PATIENT
  Sex: Male
  Weight: 112.5 kg

DRUGS (1)
  1. TIVICAY [Suspect]
     Active Substance: DOLUTEGRAVIR SODIUM
     Indication: PRODUCT USED FOR UNKNOWN INDICATION
     Dosage: 50 MG, 1D
     Route: 048
     Dates: start: 20180628

REACTIONS (4)
  - Type 2 diabetes mellitus [Recovering/Resolving]
  - Craniopharyngioma [Recovering/Resolving]
  - Hyperglycaemia [Recovering/Resolving]
  - Brain tumour operation [Unknown]
